FAERS Safety Report 5004341-9 (Version None)
Quarter: 2006Q2

REPORT INFORMATION
  Report Type: 
  Country: None (occurrence: None)
  Receive Date: 20060517
  Receipt Date: 20060508
  Transmission Date: 20061013
  Serious: Yes (Life-Threatening, Hospitalization, Other)
  Sender: FDA-Public Use
  Company Number: CA-GLAXOSMITHKLINE-A0604901A

PATIENT
  Age: 80 Year
  Sex: Male
  Weight: 73.6 kg

DRUGS (11)
  1. AVANDIA [Suspect]
     Dosage: 2MG TWICE PER DAY
     Route: 048
     Dates: start: 20060209, end: 20060313
  2. METFORMIN [Concomitant]
  3. SYNTHROID [Concomitant]
  4. ACE INHIBITOR [Concomitant]
  5. AMIODARONE [Concomitant]
  6. PROPRANOLOL [Concomitant]
  7. FOSINOPRIL SODIUM [Concomitant]
  8. COMBIVENT [Concomitant]
  9. PAXIL [Concomitant]
  10. SIMVASTATIN [Concomitant]
  11. WARFARIN SODIUM [Concomitant]

REACTIONS (3)
  - ACUTE PULMONARY OEDEMA [None]
  - CARDIAC FAILURE CONGESTIVE [None]
  - OEDEMA [None]
